FAERS Safety Report 8834169 (Version 3)
Quarter: 2012Q4

REPORT INFORMATION
  Report Type: 
  Country: BR (occurrence: BR)
  Receive Date: 20121010
  Receipt Date: 20121105
  Transmission Date: 20130627
  Serious: Yes (Hospitalization, Other)
  Sender: FDA-Public Use
  Company Number: BR-AMGEN-BRASP2012050082

PATIENT
  Age: 55 Year
  Sex: Female
  Weight: 58 kg

DRUGS (7)
  1. ENBREL [Suspect]
     Indication: ANKYLOSING SPONDYLITIS
     Dosage: 50 mg, weekly
     Route: 058
     Dates: start: 2009, end: 20121007
  2. NEXIUM                             /01479302/ [Concomitant]
     Dosage: UNK
  3. ANTAK [Concomitant]
     Indication: GASTRIN SECRETION DISORDER
     Dosage: UNK
  4. SOMALIUM [Concomitant]
     Indication: ANXIETY
     Dosage: UNK
  5. SOMALIUM [Concomitant]
     Indication: SLEEP DISORDER
  6. OMEPRAZOLE [Concomitant]
     Indication: GASTRITIS
     Dosage: UNK
  7. RANITIDINE [Concomitant]
     Indication: GASTRITIS
     Dosage: UNK

REACTIONS (3)
  - Gastric mucosal hypertrophy [Not Recovered/Not Resolved]
  - Gastritis atrophic [Not Recovered/Not Resolved]
  - Application site pain [Unknown]
